FAERS Safety Report 19510378 (Version 1)
Quarter: 2021Q3

REPORT INFORMATION
  Report Type: Spontaneous
  Country: US (occurrence: US)
  Receive Date: 20210708
  Receipt Date: 20210708
  Transmission Date: 20211014
  Serious: Yes (Death)
  Sender: FDA-Public Use
  Company Number: None

PATIENT
  Age: 68 Year
  Sex: Male

DRUGS (13)
  1. PROMACTA [Suspect]
     Active Substance: ELTROMBOPAG OLAMINE
     Indication: PRODUCT USED FOR UNKNOWN INDICATION
     Route: 048
     Dates: start: 20201225, end: 20210701
  2. SPIRIVA [Concomitant]
     Active Substance: TIOTROPIUM BROMIDE MONOHYDRATE
  3. CIPROFLOXACIN. [Concomitant]
     Active Substance: CIPROFLOXACIN
  4. PREDNISONE. [Concomitant]
     Active Substance: PREDNISONE
  5. LACTULOSE. [Concomitant]
     Active Substance: LACTULOSE
  6. BUDES/FORMOT [Concomitant]
  7. PROCHLORPER [Concomitant]
  8. LEVETIRACETAM. [Concomitant]
     Active Substance: LEVETIRACETAM
  9. XIFAXAN [Concomitant]
     Active Substance: RIFAXIMIN
  10. CETIRIZINE [Concomitant]
     Active Substance: CETIRIZINE HYDROCHLORIDE
  11. PANTOPRAZOLE [Concomitant]
     Active Substance: PANTOPRAZOLE
  12. FEROSUL [Concomitant]
     Active Substance: FERROUS SULFATE
  13. DILTIAZEM. [Concomitant]
     Active Substance: DILTIAZEM

REACTIONS (1)
  - Death [None]

NARRATIVE: CASE EVENT DATE: 20210701
